FAERS Safety Report 20462855 (Version 5)
Quarter: 2022Q1

REPORT INFORMATION
  Report Type: Report from Study
  Country: RO (occurrence: RO)
  Receive Date: 20220211
  Receipt Date: 20220309
  Transmission Date: 20220423
  Serious: Yes (Hospitalization, Other)
  Sender: FDA-Public Use
  Company Number: RO-CELGENE-ROU-20220202077

PATIENT
  Age: 51 Year
  Sex: Male

DRUGS (3)
  1. OZANIMOD [Suspect]
     Active Substance: OZANIMOD
     Indication: Relapsing multiple sclerosis
     Dosage: 1 MILLIGRAM
     Route: 048
     Dates: start: 20160426, end: 20220201
  2. OZANIMOD [Suspect]
     Active Substance: OZANIMOD
     Dosage: 1 MILLIGRAM
     Route: 048
     Dates: start: 20220206
  3. DETRICAL [Concomitant]
     Indication: Decreased immune responsiveness
     Dosage: 2000 IU (INTERNATIONAL UNIT)
     Route: 048
     Dates: start: 20210901

REACTIONS (1)
  - Seizure [Recovered/Resolved]

NARRATIVE: CASE EVENT DATE: 20220130
